FAERS Safety Report 18507849 (Version 1)
Quarter: 2020Q4

REPORT INFORMATION
  Report Type: Spontaneous
  Country: US (occurrence: US)
  Receive Date: 20201116
  Receipt Date: 20201116
  Transmission Date: 20210114
  Serious: Yes (Hospitalization, Other)
  Sender: FDA-Public Use
  Company Number: US-PURDUE PHARMA-USA-2020-0175943

PATIENT
  Age: 51 Year
  Sex: Female

DRUGS (4)
  1. HYDROCODONE BITARTRATE (SIMILAR TO NDA 206627) [Suspect]
     Active Substance: HYDROCODONE BITARTRATE
     Indication: PRODUCT USED FOR UNKNOWN INDICATION
     Route: 048
  2. TIZANIDINE. [Suspect]
     Active Substance: TIZANIDINE
     Indication: PRODUCT USED FOR UNKNOWN INDICATION
     Route: 048
  3. ENALAPRIL [Suspect]
     Active Substance: ENALAPRIL
     Indication: PRODUCT USED FOR UNKNOWN INDICATION
     Route: 048
  4. PREDNISONE. [Suspect]
     Active Substance: PREDNISONE
     Indication: PRODUCT USED FOR UNKNOWN INDICATION
     Route: 048

REACTIONS (11)
  - Generalised tonic-clonic seizure [Unknown]
  - Renal tubular necrosis [Unknown]
  - Acute hepatic failure [Unknown]
  - Renal tubular acidosis [Unknown]
  - Oliguria [Unknown]
  - Pupil fixed [Unknown]
  - Intentional overdose [Unknown]
  - Ventricular tachycardia [Unknown]
  - Rhabdomyolysis [Unknown]
  - Lethargy [Unknown]
  - Stress cardiomyopathy [Unknown]
